FAERS Safety Report 11363109 (Version 5)
Quarter: 2015Q4

REPORT INFORMATION
  Report Type: Report from Study
  Country: US (occurrence: US)
  Receive Date: 20150810
  Receipt Date: 20151008
  Transmission Date: 20160304
  Serious: No
  Sender: FDA-Public Use
  Company Number: US-AMGEN-USASL2015079875

PATIENT
  Age: 52 Year
  Sex: Female
  Weight: 65.76 kg

DRUGS (8)
  1. ALBUTEROL                          /00139501/ [Concomitant]
     Active Substance: ALBUTEROL
     Dosage: 90 MUG
     Dates: start: 20130904
  2. RESTASIS [Concomitant]
     Active Substance: CYCLOSPORINE
     Dosage: 1 DF, BID IN BOTH EYES
     Dates: start: 20150713
  3. ENBREL [Suspect]
     Active Substance: ETANERCEPT
     Indication: PSORIASIS
     Dosage: 25 MG, UNK
     Route: 058
     Dates: start: 20150829, end: 20150905
  4. PEPCID                             /00305201/ [Concomitant]
     Active Substance: ALUMINUM HYDROXIDE\MAGNESIUM CARBONATE
     Dosage: 40 MG, UNK
     Route: 048
     Dates: start: 20130904
  5. VITAMIN D                          /00107901/ [Concomitant]
     Active Substance: ERGOCALCIFEROL
     Dosage: 5000 UNIT, QD
     Route: 048
     Dates: start: 20150713
  6. ENBREL [Suspect]
     Active Substance: ETANERCEPT
     Indication: PSORIATIC ARTHROPATHY
     Dosage: 50 MG, QWK
     Route: 058
     Dates: start: 20150731, end: 20150821
  7. SINGULAIR [Concomitant]
     Active Substance: MONTELUKAST SODIUM
     Dosage: 10 MG, UNK
     Route: 048
     Dates: start: 20130904
  8. XYZAL [Concomitant]
     Active Substance: LEVOCETIRIZINE DIHYDROCHLORIDE
     Dosage: , QHS
     Route: 048
     Dates: start: 20130904

REACTIONS (18)
  - Ear pain [Recovering/Resolving]
  - Chest pain [Recovering/Resolving]
  - Poor quality sleep [Unknown]
  - Back pain [Not Recovered/Not Resolved]
  - Gait disturbance [Unknown]
  - Hypersensitivity [Unknown]
  - Swelling [Recovering/Resolving]
  - Dysphonia [Recovering/Resolving]
  - Pain [Recovering/Resolving]
  - Joint stiffness [Not Recovered/Not Resolved]
  - Musculoskeletal stiffness [Not Recovered/Not Resolved]
  - Oropharyngeal pain [Recovering/Resolving]
  - Dyspnoea [Recovering/Resolving]
  - Heart rate decreased [Unknown]
  - Fatigue [Recovering/Resolving]
  - Arthralgia [Recovering/Resolving]
  - Feeling abnormal [Recovering/Resolving]
  - Respiratory disorder [Unknown]

NARRATIVE: CASE EVENT DATE: 20150731
